FAERS Safety Report 18610571 (Version 1)
Quarter: 2020Q4

REPORT INFORMATION
  Report Type: Spontaneous
  Country: NP (occurrence: NP)
  Receive Date: 20201214
  Receipt Date: 20201214
  Transmission Date: 20210114
  Serious: Yes (Life-Threatening, Hospitalization, Other)
  Sender: FDA-Public Use
  Company Number: NP-GLAXOSMITHKLINE-NP2020GSK238897

PATIENT
  Age: 23 Year
  Sex: Female

DRUGS (2)
  1. LAMOTRIGINE. [Suspect]
     Active Substance: LAMOTRIGINE
     Indication: FOCAL DYSCOGNITIVE SEIZURES
     Dosage: 50 MG
  2. OXCARBAZEPINE. [Concomitant]
     Active Substance: OXCARBAZEPINE
     Indication: FOCAL DYSCOGNITIVE SEIZURES
     Dosage: UNK

REACTIONS (20)
  - Dysuria [Recovered/Resolved]
  - Nikolsky^s sign [Recovered/Resolved]
  - Erythema [Recovered/Resolved]
  - Staphylococcal infection [Recovered/Resolved]
  - Mouth ulceration [Recovered/Resolved]
  - Disease progression [Recovered/Resolved]
  - Rash [Recovered/Resolved]
  - Acinetobacter infection [Recovered/Resolved]
  - White blood cell count decreased [Recovered/Resolved]
  - Skin lesion [Unknown]
  - Skin exfoliation [Recovered/Resolved]
  - Alanine aminotransferase increased [Recovered/Resolved]
  - Aspartate aminotransferase increased [Recovered/Resolved]
  - Toxic epidermal necrolysis [Recovered/Resolved]
  - Purpura [Recovered/Resolved]
  - Skin necrosis [Recovered/Resolved]
  - Pyrexia [Recovered/Resolved]
  - Neutrophil count decreased [Recovered/Resolved]
  - Dysphagia [Recovered/Resolved]
  - Eye irritation [Recovered/Resolved]
